FAERS Safety Report 6681659-5 (Version None)
Quarter: 2010Q2

REPORT INFORMATION
  Report Type: 
  Country: None (occurrence: None)
  Receive Date: 20100413
  Receipt Date: 20100413
  Transmission Date: 20101027
  Serious: Yes (Other)
  Sender: FDA-Public Use
  Company Number: None

PATIENT
  Age: 4 Year
  Sex: Male
  Weight: 15.4223 kg

DRUGS (2)
  1. MIRALAX [Suspect]
     Indication: CONSTIPATION
     Dosage: 17 G 1 TIME DAY PO; 17G 2 TIME DAY PO
     Route: 048
     Dates: start: 20060110, end: 20100410
  2. MIRALAX [Suspect]
     Indication: RECTAL PROLAPSE
     Dosage: 17 G 1 TIME DAY PO; 17G 2 TIME DAY PO
     Route: 048
     Dates: start: 20060110, end: 20100410

REACTIONS (18)
  - ABNORMAL BEHAVIOUR [None]
  - ANAPHYLACTIC REACTION [None]
  - BRONCHOSPASM [None]
  - CONVULSION [None]
  - DENTAL CARIES [None]
  - DISTURBANCE IN ATTENTION [None]
  - DRUG DEPENDENCE [None]
  - DRY SKIN [None]
  - EMOTIONAL DISORDER [None]
  - FAILURE TO THRIVE [None]
  - FEAR [None]
  - INCORRECT DOSE ADMINISTERED [None]
  - INSOMNIA [None]
  - NERVOUSNESS [None]
  - PAIN IN EXTREMITY [None]
  - PRURITUS [None]
  - SOMNAMBULISM [None]
  - TIC [None]
